FAERS Safety Report 5246657-7 (Version None)
Quarter: 2007Q1

REPORT INFORMATION
  Report Type: 
  Country: None (occurrence: None)
  Receive Date: 20070226
  Receipt Date: 20070216
  Transmission Date: 20070707
  Serious: Yes (Other)
  Sender: FDA-Public Use
  Company Number: CN-JNJFOC-20060701791

PATIENT
  Sex: Female
  Weight: 52 kg

DRUGS (2)
  1. TYLENOL (CAPLET) [Suspect]
     Indication: PAIN
  2. TYLENOL (CAPLET) [Suspect]
     Indication: PYREXIA

REACTIONS (1)
  - HEPATIC FUNCTION ABNORMAL [None]
